FAERS Safety Report 4510522-0 (Version None)
Quarter: 2004Q4

REPORT INFORMATION
  Report Type: 
  Country: None (occurrence: None)
  Receive Date: 20041122
  Receipt Date: 20041108
  Transmission Date: 20050328
  Serious: Yes (Hospitalization)
  Sender: FDA-Public Use
  Company Number: 001114

PATIENT
  Age: 77 Year
  Sex: Male
  Weight: 66.9 kg

DRUGS (16)
  1. ZEVALIN [Suspect]
     Indication: NON-HODGKIN'S LYMPHOMA
     Dosage: SEE IMAGE
     Route: 042
     Dates: start: 20041102, end: 20041102
  2. ZEVALIN [Suspect]
     Indication: NON-HODGKIN'S LYMPHOMA
     Dosage: SEE IMAGE
     Route: 042
     Dates: start: 20041102, end: 20041102
  3. EVALIN THERAPY(RITUXIMAB, INDIUM-111-IBRITUMOMAB TIUXETAN, YTTRIUM-90- [Suspect]
  4. MS CONTIN [Concomitant]
  5. METHADONE (METHADONE) [Concomitant]
  6. ALTACE [Concomitant]
  7. DECADRON [Concomitant]
  8. BACTRIM DS [Concomitant]
  9. SENOKOT-S (DOCUSTAE SODIUM, SENNA) [Concomitant]
  10. PREVACID [Concomitant]
  11. IMDUR [Concomitant]
  12. CAPSAICIN (CAPSAICIN) [Concomitant]
  13. LASIX [Concomitant]
  14. NORCO [Concomitant]
  15. BENADRYL ^ACHE^ (SODIUM CITRATE, MENTHOL, AMMONIUM CHLORIDE, DIPHENHYD [Concomitant]
  16. AMBIEN [Concomitant]

REACTIONS (5)
  - CARDIOMEGALY [None]
  - GENERAL PHYSICAL HEALTH DETERIORATION [None]
  - PLEURAL EFFUSION [None]
  - PROTHROMBIN TIME PROLONGED [None]
  - PULMONARY EMBOLISM [None]
